FAERS Safety Report 10489500 (Version 1)
Quarter: 2014Q3

REPORT INFORMATION
  Report Type: Spontaneous
  Country: US (occurrence: None)
  Receive Date: 20140815
  Receipt Date: 20140815
  Transmission Date: 20150326
  Serious: Yes (Life-Threatening, Hospitalization, Other)
  Sender: FDA-Public Use
  Company Number: ADR-2013-02191

PATIENT
  Sex: Female

DRUGS (5)
  1. DILAUDID [Suspect]
     Active Substance: HYDROMORPHONE HYDROCHLORIDE
  2. FENTANYL. [Suspect]
     Active Substance: FENTANYL
  3. CLONIDINE. [Suspect]
     Active Substance: CLONIDINE
  4. BUPIVICAINE [Suspect]
     Active Substance: BUPIVACAINE
  5. BACLOFEN INTRATHECAL [Suspect]
     Active Substance: BACLOFEN
     Indication: PAIN

REACTIONS (7)
  - Drug withdrawal syndrome [None]
  - Gait disturbance [None]
  - Hypertension [None]
  - Full blood count decreased [None]
  - Influenza like illness [None]
  - Altered state of consciousness [None]
  - Sedation [None]
